FAERS Safety Report 21592196 (Version 5)
Quarter: 2023Q2

REPORT INFORMATION
  Report Type: Spontaneous
  Country: US (occurrence: US)
  Receive Date: 20221114
  Receipt Date: 20230524
  Transmission Date: 20230722
  Serious: Yes (Other)
  Sender: FDA-Public Use
  Company Number: US-BRISTOL-MYERS SQUIBB COMPANY-2022-137126

PATIENT
  Age: 58 Year
  Sex: Female
  Weight: 92.079 kg

DRUGS (2)
  1. REVLIMID [Suspect]
     Active Substance: LENALIDOMIDE
     Indication: Plasma cell myeloma
     Dosage: DAILY 1-21, THEN 7 DAYS OFF
     Route: 048
     Dates: start: 20211020
  2. REVLIMID [Suspect]
     Active Substance: LENALIDOMIDE
     Dosage: FREQ - DAILY DAY 1-28
     Route: 048
     Dates: start: 20220315

REACTIONS (5)
  - Dry mouth [Recovering/Resolving]
  - Pneumonia [Recovered/Resolved]
  - Respiratory syncytial virus infection [Recovered/Resolved]
  - Neutropenia [Recovered/Resolved]
  - Pharyngitis [Unknown]
